FAERS Safety Report 7576301-5 (Version None)
Quarter: 2011Q2

REPORT INFORMATION
  Report Type: 
  Country: None (occurrence: None)
  Receive Date: 20110628
  Receipt Date: 20080720
  Transmission Date: 20111010
  Serious: Yes (Other)
  Sender: FDA-Public Use
  Company Number: US-BAYER-200825446NA

PATIENT
  Sex: Female

DRUGS (19)
  1. VERPAMIL HCL [Concomitant]
  2. CLONIDINE [Concomitant]
  3. PROHANCE [Suspect]
     Indication: NUCLEAR MAGNETIC RESONANCE IMAGING
  4. PREVACID [Concomitant]
  5. FOSAMAX [Concomitant]
  6. MULTIHANCE [Suspect]
     Indication: NUCLEAR MAGNETIC RESONANCE IMAGING
  7. ZOCOR [Concomitant]
  8. MAGNEVIST [Suspect]
     Indication: NUCLEAR MAGNETIC RESONANCE IMAGING
     Dosage: 20 ML, ONCE
     Dates: start: 19990316, end: 19990316
  9. PROGRAF [Concomitant]
  10. PREDNISONE [Concomitant]
  11. OMNISCAN [Suspect]
     Indication: NUCLEAR MAGNETIC RESONANCE IMAGING
     Dosage: 50 ML, ONCE
     Dates: start: 19990608, end: 19990608
  12. OMNISCAN [Suspect]
     Dosage: UNK, ONCE
     Dates: start: 19990808, end: 19990808
  13. CALCITRIOL [Concomitant]
  14. MAGNEVIST [Suspect]
     Dosage: 20 ML, ONCE
     Dates: start: 19990720, end: 19990720
  15. OPTIMARK [Suspect]
     Indication: NUCLEAR MAGNETIC RESONANCE IMAGING
  16. CELLCEPT [Concomitant]
  17. MAGNEVIST [Suspect]
     Dosage: UNK, ONCE
     Dates: start: 19990524, end: 19990524
  18. SYNTHROID [Concomitant]
  19. DARVOCET [Concomitant]

REACTIONS (14)
  - EMOTIONAL DISTRESS [None]
  - MUSCULOSKELETAL STIFFNESS [None]
  - INJURY [None]
  - MOBILITY DECREASED [None]
  - NEPHROGENIC SYSTEMIC FIBROSIS [None]
  - SCAR [None]
  - PAIN [None]
  - ANXIETY [None]
  - GENERAL PHYSICAL HEALTH DETERIORATION [None]
  - DEPRESSION [None]
  - SKIN DISORDER [None]
  - FIBROSIS [None]
  - EXTREMITY CONTRACTURE [None]
  - SKIN INDURATION [None]
